FAERS Safety Report 12462421 (Version 1)
Quarter: 2016Q2

REPORT INFORMATION
  Report Type: Report from Study
  Country: FR (occurrence: FR)
  Receive Date: 20160614
  Receipt Date: 20160614
  Transmission Date: 20160815
  Serious: Yes (Other)
  Sender: FDA-Public Use
  Company Number: FR-ROCHE-1751366

PATIENT
  Age: 75 Year
  Sex: Male

DRUGS (1)
  1. RANIBIZUMAB [Suspect]
     Active Substance: RANIBIZUMAB
     Indication: DIABETIC RETINAL OEDEMA
     Dosage: SUBSEQUENT DOSE ON 21/MAY/2014, 18/JUN/2014 AND IN /SEP/2014 (PRIOR TO EVENT), 11/FEB/2015.
     Route: 050
     Dates: start: 20140423

REACTIONS (3)
  - Oedema [Unknown]
  - Foreign body sensation in eyes [Recovered/Resolved]
  - Sleep apnoea syndrome [Unknown]

NARRATIVE: CASE EVENT DATE: 201409
